FAERS Safety Report 9232290 (Version 1)
Quarter: 2013Q2

REPORT INFORMATION
  Report Type: Report from Study
  Country: US (occurrence: US)
  Receive Date: 20130415
  Receipt Date: 20130415
  Transmission Date: 20140414
  Serious: Yes (Hospitalization)
  Sender: FDA-Public Use
  Company Number: US-US-EMD SERONO, INC.-7204708

PATIENT
  Sex: Male

DRUGS (2)
  1. REBIF [Suspect]
     Indication: PRODUCT USED FOR UNKNOWN INDICATION
     Route: 058
     Dates: start: 20090408
  2. TYLENOL /00020001/ [Concomitant]
     Indication: PREMEDICATION

REACTIONS (3)
  - Somnolence [Unknown]
  - Tremor [Unknown]
  - Electroencephalogram abnormal [Unknown]
